FAERS Safety Report 14759465 (Version 4)
Quarter: 2018Q3

REPORT INFORMATION
  Report Type: Report from Study
  Country: GB (occurrence: GB)
  Receive Date: 20180413
  Receipt Date: 20180723
  Transmission Date: 20181010
  Serious: Yes (Other)
  Sender: FDA-Public Use
  Company Number: PHHY2018GB060449

PATIENT
  Sex: Female

DRUGS (2)
  1. COSENTYX [Suspect]
     Active Substance: SECUKINUMAB
     Indication: PSORIATIC ARTHROPATHY
     Dosage: 300 MG, QW (LOADING DOSE WEEKLY FOR WEEKS 0,1,2,3 AND MONTHLY FROM WEEK 4 ONWARDS)
     Route: 058
     Dates: start: 20180326
  2. COSENTYX [Suspect]
     Active Substance: SECUKINUMAB
     Dosage: 300 MG, QW (LOADING DOSE WEEKLY FOR WEEKS 0,1,2,3 AND MONTHLY FROM WEEK 4 ONWARDS)
     Route: 058

REACTIONS (7)
  - Sputum discoloured [Unknown]
  - Neck pain [Unknown]
  - Nasal congestion [Unknown]
  - Lymphadenopathy [Unknown]
  - Malaise [Unknown]
  - Headache [Unknown]
  - Productive cough [Unknown]
